FAERS Safety Report 13495759 (Version 1)
Quarter: 2017Q2

REPORT INFORMATION
  Report Type: Spontaneous
  Country: CA (occurrence: CA)
  Receive Date: 20170428
  Receipt Date: 20170428
  Transmission Date: 20170830
  Serious: Yes (Other)
  Sender: FDA-Public Use
  Company Number: CA-TEVA-764721ACC

PATIENT
  Age: 59 Year
  Sex: Female
  Weight: 74.46 kg

DRUGS (10)
  1. BUPROPION SR [Concomitant]
     Active Substance: BUPROPION HYDROCHLORIDE
  2. NOVORAPID [Concomitant]
     Active Substance: INSULIN ASPART
  3. INDAPAMIDE. [Suspect]
     Active Substance: INDAPAMIDE
     Indication: HYPERTENSION
     Dosage: 2.5 MILLIGRAM DAILY;
     Route: 048
  4. LIPITOR [Concomitant]
     Active Substance: ATORVASTATIN CALCIUM
  5. VASOTEC [Concomitant]
     Active Substance: ENALAPRIL MALEATE
  6. CALCIUM [Concomitant]
     Active Substance: CALCIUM
  7. HUMULIN NOS [Concomitant]
     Active Substance: INSULIN HUMAN
  8. BISOPROLOL [Concomitant]
     Active Substance: BISOPROLOL
  9. METFORMIN [Concomitant]
     Active Substance: METFORMIN HYDROCHLORIDE
  10. VITAMIN D [Concomitant]
     Active Substance: CHOLECALCIFEROL

REACTIONS (2)
  - Insomnia [Recovered/Resolved]
  - Disturbance in attention [Recovered/Resolved]
